FAERS Safety Report 6047883-X (Version None)
Quarter: 2009Q1

REPORT INFORMATION
  Report Type: 
  Country: None (occurrence: None)
  Receive Date: 20090123
  Receipt Date: 20090115
  Transmission Date: 20090719
  Serious: Yes (Other)
  Sender: FDA-Public Use
  Company Number: CA-ASTRAZENECA-2009UW01397

PATIENT
  Age: 81 Year
  Sex: Female

DRUGS (11)
  1. ATACAND [Suspect]
     Dosage: ONE EVERY DAY
     Route: 048
  2. BROMAZEPAM [Interacting]
     Dosage: ONE EVERY DAY
     Route: 048
  3. DOCUSATE SODIUM [Interacting]
     Dosage: ONE EVERY DAY
     Route: 048
  4. FERROUS GLUCONATE [Interacting]
     Dosage: ONE EVERY DAY
     Route: 048
  5. HYDROCHLOROTHIAZIDE [Interacting]
     Dosage: ONE EVERY DAY
     Route: 048
  6. MOBICOX [Interacting]
     Dosage: ONE EVERY DAY
     Route: 048
  7. NEOCITRAN COLD AND FLU SYRUP [Interacting]
     Route: 048
  8. PARIET [Interacting]
     Dosage: TWO EVERY DAY
     Route: 048
  9. PROPRANOLOL [Interacting]
     Dosage: TWO EVERY DAY
     Route: 048
  10. SERTRALINE [Interacting]
     Dosage: ONE EVERY DAY
     Route: 048
  11. SYNTHROID [Interacting]
     Dosage: ONE EVERY DAY
     Route: 048

REACTIONS (3)
  - DRUG INTERACTION [None]
  - FALL [None]
  - FEELING ABNORMAL [None]
